FAERS Safety Report 7580635-8 (Version None)
Quarter: 2011Q2

REPORT INFORMATION
  Report Type: 
  Country: None (occurrence: None)
  Receive Date: 20110620
  Receipt Date: 20110607
  Transmission Date: 20111010
  Serious: Yes (Disabling)
  Sender: FDA-Public Use
  Company Number: AEUSA201100110

PATIENT
  Age: 12 Year
  Sex: Male
  Weight: 39 kg

DRUGS (12)
  1. ADVAIR DISKUS 100/50 [Concomitant]
  2. BENADRY /00000402/ [Concomitant]
  3. PREDNISONE [Concomitant]
  4. OLOPATADINE [Concomitant]
  5. AUGUMENTIN/01000301/ [Concomitant]
  6. MOTRIN [Concomitant]
  7. TYLENOL (CAPLET) [Concomitant]
  8. MUCINEX [Concomitant]
  9. GAMUNEX [Suspect]
     Indication: SECONDARY IMMUNODEFICIENCY
     Dosage: 5 GM; 1X; SC
     Route: 058
     Dates: start: 20110328, end: 20110416
  10. XYZAL [Concomitant]
  11. SINGULAIR /01362602/ [Concomitant]
  12. HIZENTRA [Suspect]
     Indication: SECONDARY IMMUNODEFICIENCY
     Dosage: 5 GM;QW;SC
     Route: 058
     Dates: start: 20110301, end: 20110401

REACTIONS (7)
  - PAIN [None]
  - PRURITUS [None]
  - ARTHRALGIA [None]
  - HEADACHE [None]
  - NAUSEA [None]
  - PAIN IN EXTREMITY [None]
  - GAIT DISTURBANCE [None]
